FAERS Safety Report 8873789 (Version 1)
Quarter: 2012Q4

REPORT INFORMATION
  Report Type: Report from Study
  Country: US (occurrence: US)
  Receive Date: 20121030
  Receipt Date: 20121030
  Transmission Date: 20130627
  Serious: No
  Sender: FDA-Public Use
  Company Number: US-ABBOTT-12P-163-0924509-00

PATIENT
  Sex: Female
  Weight: 99.88 kg

DRUGS (6)
  1. LUPRON DEPOT 3.75 MG [Suspect]
     Indication: UTERINE LEIOMYOMA
     Dates: start: 201203
  2. LEXAPRO [Concomitant]
     Indication: AGITATION
  3. WELLBUTRIN [Concomitant]
     Indication: DEPRESSION
  4. XANAX [Concomitant]
     Indication: INSOMNIA
  5. XANAX [Concomitant]
     Indication: AGITATION
  6. IRON [Concomitant]
     Indication: ANAEMIA

REACTIONS (3)
  - Agitation [Recovering/Resolving]
  - Depression [Recovering/Resolving]
  - Arthralgia [Recovering/Resolving]
